FAERS Safety Report 4617465-2 (Version None)
Quarter: 2005Q1

REPORT INFORMATION
  Report Type: 
  Country: None (occurrence: None)
  Receive Date: 20050322
  Receipt Date: 20050308
  Transmission Date: 20050727
  Serious: Yes (Death)
  Sender: FDA-Public Use
  Company Number: 2005S1001035

PATIENT
  Age: 84 Year
  Sex: Male

DRUGS (11)
  1. CLOZAPINE [Suspect]
     Indication: ABNORMAL BEHAVIOUR
     Dosage: 12.5 MG.; QD; PO
     Route: 048
     Dates: start: 20020510
  2. COREG [Concomitant]
  3. LUVOX [Concomitant]
  4. BENZONATATE [Concomitant]
  5. LEVAQUIN [Concomitant]
  6. TRAZODONE HCL [Concomitant]
  7. FUROSEMIDE [Concomitant]
  8. PREVACID [Concomitant]
  9. PLAVIX [Concomitant]
  10. AVELOX [Concomitant]
  11. GUAIFENESIN/DEXTROMETHORPHAN [Concomitant]

REACTIONS (1)
  - DEATH [None]
